FAERS Safety Report 14164990 (Version 1)
Quarter: 2017Q4

REPORT INFORMATION
  Report Type: Spontaneous
  Country: CN (occurrence: CN)
  Receive Date: 20171107
  Receipt Date: 20171107
  Transmission Date: 20180321
  Serious: Yes (Hospitalization, Other)
  Sender: FDA-Public Use
  Company Number: CN-ASTELLAS-2017US044606

PATIENT
  Age: 51 Year
  Sex: Male

DRUGS (1)
  1. TACROLIMUS. [Suspect]
     Active Substance: TACROLIMUS
     Indication: LIVER TRANSPLANT
     Dosage: UNK UNK, UNKNOWN FREQ.
     Route: 065
     Dates: start: 2006

REACTIONS (4)
  - Pulmonary tuberculosis [Unknown]
  - Post transplant lymphoproliferative disorder [Recovered/Resolved]
  - Acute hepatic failure [Recovered/Resolved]
  - Diffuse large B-cell lymphoma [Recovered/Resolved]
